FAERS Safety Report 18136101 (Version 1)
Quarter: 2020Q3

REPORT INFORMATION
  Report Type: Spontaneous
  Country: AU (occurrence: AU)
  Receive Date: 20200811
  Receipt Date: 20200811
  Transmission Date: 20201103
  Serious: Yes (Other)
  Sender: FDA-Public Use
  Company Number: AU-GE HEALTHCARE LIFE SCIENCES-2020CSU003413

PATIENT

DRUGS (6)
  1. METOPROLOL. [Concomitant]
     Active Substance: METOPROLOL
     Indication: CORONARY ARTERIAL STENT INSERTION
     Dosage: 25 MG, BID
     Route: 048
     Dates: start: 20060101
  2. EXFORGE [Concomitant]
     Active Substance: AMLODIPINE BESYLATE\VALSARTAN
     Indication: HYPERTENSION
     Dosage: 5MG/80MG, QD
     Route: 048
     Dates: start: 20180101
  3. OMNIPAQUE [Suspect]
     Active Substance: IOHEXOL
     Indication: CHEST PAIN
  4. PLAVIX [Concomitant]
     Active Substance: CLOPIDOGREL BISULFATE
     Indication: CORONARY ARTERIAL STENT INSERTION
     Dosage: 75 MG, QD
     Route: 048
     Dates: start: 20060101
  5. PROGOUT [Concomitant]
     Active Substance: ALLOPURINOL
     Indication: GOUT
     Dosage: 100 MG, QD
     Route: 048
     Dates: start: 20120101
  6. OMNIPAQUE [Suspect]
     Active Substance: IOHEXOL
     Indication: COMPUTERISED TOMOGRAM CORONARY ARTERY
     Dosage: 80 ML, SINGLE
     Route: 042
     Dates: start: 20200803, end: 20200803

REACTIONS (2)
  - Sneezing [Recovered/Resolved]
  - Paraesthesia oral [Recovered/Resolved]

NARRATIVE: CASE EVENT DATE: 20200803
